FAERS Safety Report 13191616 (Version 4)
Quarter: 2018Q1

REPORT INFORMATION
  Report Type: Spontaneous
  Country: US (occurrence: US)
  Receive Date: 20170207
  Receipt Date: 20180116
  Transmission Date: 20180508
  Serious: Yes (Hospitalization, Other)
  Sender: FDA-Public Use
  Company Number: US-ALEXION-A201700948

PATIENT
  Sex: Female

DRUGS (2)
  1. STRENSIQ [Suspect]
     Active Substance: ASFOTASE ALFA
     Dosage: UNK
     Route: 058
  2. STRENSIQ [Suspect]
     Active Substance: ASFOTASE ALFA
     Indication: HYPOPHOSPHATASIA
     Dosage: UNK
     Route: 058

REACTIONS (14)
  - Blood pressure decreased [Unknown]
  - Cerebrovascular accident [Unknown]
  - Unresponsive to stimuli [Not Recovered/Not Resolved]
  - Aphasia [Not Recovered/Not Resolved]
  - Gait inability [Unknown]
  - Syncope [Unknown]
  - Presyncope [Unknown]
  - Tunnel vision [Unknown]
  - Hypoaesthesia [Unknown]
  - Heart rate increased [Unknown]
  - Depressed level of consciousness [Unknown]
  - General physical health deterioration [Not Recovered/Not Resolved]
  - Thrombosis [Unknown]
  - Loss of consciousness [Unknown]

NARRATIVE: CASE EVENT DATE: 20170207
